FAERS Safety Report 19118677 (Version 3)
Quarter: 2021Q2

REPORT INFORMATION
  Report Type: Spontaneous
  Country: FR (occurrence: FR)
  Receive Date: 20210410
  Receipt Date: 20210611
  Transmission Date: 20210717
  Serious: Yes (Death, Other)
  Sender: FDA-Public Use
  Company Number: FR-B.I. PHARMACEUTICALS,INC./RIDGEFIELD-2021-BI-096095

PATIENT
  Age: 61 Year
  Sex: Male
  Weight: 111 kg

DRUGS (4)
  1. TRAMADOL TEVA [Suspect]
     Active Substance: TRAMADOL
     Indication: ARTHRALGIA
     Dosage: TOOK ONLY 3 DF OF TRAMADOL TEVA IN TOTAL
     Route: 048
     Dates: start: 20210120
  2. MICARDIS [Suspect]
     Active Substance: TELMISARTAN
     Indication: HYPERTENSION
     Route: 048
     Dates: start: 20190503
  3. TRAMADOL TEVA [Suspect]
     Active Substance: TRAMADOL
     Indication: MUSCLE RUPTURE
  4. DAFALGAN [Suspect]
     Active Substance: ACETAMINOPHEN
     Indication: MUSCLE RUPTURE

REACTIONS (21)
  - General physical health deterioration [Fatal]
  - Diarrhoea [Fatal]
  - Confusional state [Fatal]
  - Cardiac arrest [Fatal]
  - Hallucination [Unknown]
  - Pulmonary embolism [Fatal]
  - Delirium [Not Recovered/Not Resolved]
  - Somnolence [Fatal]
  - Drug interaction [Not Recovered/Not Resolved]
  - Dry mouth [Not Recovered/Not Resolved]
  - Fall [Not Recovered/Not Resolved]
  - Hyperhidrosis [Fatal]
  - Thirst [Unknown]
  - Hypoaesthesia [Not Recovered/Not Resolved]
  - Coordination abnormal [Not Recovered/Not Resolved]
  - Dizziness [Not Recovered/Not Resolved]
  - Balance disorder [Unknown]
  - Disorganised speech [Unknown]
  - Abdominal distension [Fatal]
  - Tremor [Unknown]
  - Decreased appetite [Not Recovered/Not Resolved]

NARRATIVE: CASE EVENT DATE: 20210121
